FAERS Safety Report 15689265 (Version 1)
Quarter: 2018Q4

REPORT INFORMATION
  Report Type: Spontaneous
  Country: TW (occurrence: TW)
  Receive Date: 20181205
  Receipt Date: 20181205
  Transmission Date: 20190205
  Serious: Yes (Other)
  Sender: FDA-Public Use
  Company Number: TW-SA-2018SA329368

PATIENT
  Age: 56 Year
  Sex: Male
  Weight: 73 kg

DRUGS (2)
  1. PRIFTIN [Suspect]
     Active Substance: RIFAPENTINE
     Indication: LATENT TUBERCULOSIS
     Dosage: 900 MG, QW
     Route: 048
  2. ISONIAZID. [Suspect]
     Active Substance: ISONIAZID
     Indication: LATENT TUBERCULOSIS
     Dosage: 900 MG, QW
     Route: 048

REACTIONS (7)
  - Dyspnoea [Recovered/Resolved]
  - Shock [Recovered/Resolved]
  - Blood pressure decreased [Recovered/Resolved]
  - Pyrexia [Recovered/Resolved]
  - Myalgia [Recovered/Resolved]
  - Flushing [Recovered/Resolved]
  - Rash [Recovered/Resolved]
